FAERS Safety Report 23161197 (Version 1)
Quarter: 2023Q4

REPORT INFORMATION
  Report Type: Spontaneous
  Country: CN (occurrence: CN)
  Receive Date: 20231108
  Receipt Date: 20231108
  Transmission Date: 20240110
  Serious: Yes (Other)
  Sender: FDA-Public Use
  Company Number: CN-ELI_LILLY_AND_COMPANY-CN202311001183

PATIENT
  Age: 37 Year
  Sex: Female
  Weight: 50 kg

DRUGS (3)
  1. DULOXETINE HYDROCHLORIDE [Suspect]
     Active Substance: DULOXETINE HYDROCHLORIDE
     Indication: Anxiety disorder
     Dosage: 60 MG, DAILY
     Route: 048
     Dates: start: 20231016, end: 20231027
  2. OLANZAPINE [Concomitant]
     Active Substance: OLANZAPINE
     Indication: Anxiety disorder
     Dosage: 5 MG, DAILY
     Route: 048
     Dates: start: 20231016, end: 20231027
  3. RIVAROXABAN [Concomitant]
     Active Substance: RIVAROXABAN
     Indication: Anticoagulant therapy
     Dosage: 15 MG, DAILY
     Route: 048
     Dates: start: 20231005, end: 20231027

REACTIONS (1)
  - Hepatic function abnormal [Unknown]

NARRATIVE: CASE EVENT DATE: 20231026
